FAERS Safety Report 8888703 (Version 2)
Quarter: 2012Q4

REPORT INFORMATION
  Report Type: 
  Country: JP (occurrence: JP)
  Receive Date: 20121106
  Receipt Date: 20121203
  Transmission Date: 20130627
  Serious: Yes (Other)
  Sender: FDA-Public Use
  Company Number: JP-GLAXOSMITHKLINE-B0836365A

PATIENT
  Age: 65 None
  Sex: Female

DRUGS (10)
  1. LAMICTAL [Suspect]
     Indication: BIPOLAR I DISORDER
     Dosage: 25MG Per day
     Route: 048
     Dates: start: 20120810, end: 20120821
  2. LAMICTAL [Suspect]
     Indication: BIPOLAR I DISORDER
     Dosage: 25MG Twice per day
     Route: 048
     Dates: start: 20120822, end: 20120918
  3. LAMICTAL [Suspect]
     Indication: BIPOLAR I DISORDER
     Dosage: 25MG Three times per day
     Route: 048
     Dates: start: 20120919, end: 20120925
  4. LAMICTAL [Suspect]
     Indication: BIPOLAR I DISORDER
     Dosage: 50MG Twice per day
     Route: 048
     Dates: start: 20120926, end: 20121008
  5. LAMICTAL [Suspect]
     Indication: BIPOLAR I DISORDER
     Dosage: 25MG Three times per day
     Route: 048
     Dates: start: 20121009, end: 20121015
  6. LAMICTAL [Suspect]
     Indication: BIPOLAR I DISORDER
     Dosage: 25MG Twice per day
     Route: 048
     Dates: start: 20121016
  7. DIART [Concomitant]
     Route: 048
  8. NORVASC [Concomitant]
     Route: 048
  9. SEROQUEL [Concomitant]
     Indication: INSOMNIA
     Dosage: 25MG Per day
     Route: 048
  10. LENDORMIN [Concomitant]
     Indication: INSOMNIA
     Dosage: .25MG Per day
     Route: 048

REACTIONS (5)
  - Blood creatinine increased [Not Recovered/Not Resolved]
  - Renal impairment [Unknown]
  - Blood urea increased [Unknown]
  - Blood chloride decreased [Unknown]
  - Blood potassium decreased [Unknown]
